FAERS Safety Report 11158624 (Version 1)
Quarter: 2015Q2

REPORT INFORMATION
  Report Type: Spontaneous
  Country: US (occurrence: None)
  Receive Date: 20150602
  Receipt Date: 20150602
  Transmission Date: 20150821
  Serious: Yes (Hospitalization)
  Sender: FDA-Public Use
  Company Number: None

PATIENT
  Age: 64 Year
  Sex: Female
  Weight: 53.5 kg

DRUGS (1)
  1. NIVOLUMAB [Suspect]
     Active Substance: NIVOLUMAB
     Indication: LUNG CANCER METASTATIC
     Route: 042
     Dates: start: 20150521, end: 20150521

REACTIONS (7)
  - Delirium [None]
  - Adrenal mass [None]
  - Condition aggravated [None]
  - Abdominal pain [None]
  - Infection [None]
  - Encephalopathy [None]
  - Asterixis [None]

NARRATIVE: CASE EVENT DATE: 20150521
